FAERS Safety Report 7833758-X (Version None)
Quarter: 2011Q4

REPORT INFORMATION
  Report Type: 
  Country: None (occurrence: None)
  Receive Date: 20111024
  Receipt Date: 20111018
  Transmission Date: 20120403
  Serious: Yes (Death, Hospitalization, Other)
  Sender: FDA-Public Use
  Company Number: JP-ELI_LILLY_AND_COMPANY-JP201110005098

PATIENT
  Sex: Female
  Weight: 38 kg

DRUGS (3)
  1. GEMZAR [Suspect]
     Indication: PANCREATIC CARCINOMA STAGE IV
     Dosage: 1400 MG, UNK
     Route: 042
     Dates: start: 20071204, end: 20081015
  2. GEMZAR [Suspect]
     Dosage: 1400 MG, UNK
     Route: 042
     Dates: start: 20091207
  3. TS 1 [Concomitant]
     Indication: PANCREATIC CARCINOMA STAGE IV
     Dosage: UNK MG, UNK
     Dates: start: 20081029

REACTIONS (5)
  - METASTASES TO LUNG [None]
  - CHOLANGITIS [None]
  - NEOPLASM PROGRESSION [None]
  - INTERSTITIAL LUNG DISEASE [None]
  - MALIGNANT PLEURAL EFFUSION [None]
